FAERS Safety Report 18679121 (Version 1)
Quarter: 2020Q4

REPORT INFORMATION
  Report Type: Spontaneous
  Country: NP (occurrence: NP)
  Receive Date: 20201229
  Receipt Date: 20201229
  Transmission Date: 20210114
  Serious: Yes (Disabling)
  Sender: FDA-Public Use
  Company Number: PHBS1997NP05929

PATIENT
  Age: 49 Year
  Sex: Female

DRUGS (3)
  1. RIFAMPICIN [Suspect]
     Active Substance: RIFAMPIN
     Indication: BORDERLINE LEPROSY
     Dosage: 600 MG
     Route: 065
  2. CLOFAZIMINE [Suspect]
     Active Substance: CLOFAZIMINE
     Indication: BORDERLINE LEPROSY
     Dosage: 100 MG
     Route: 065
  3. DAPSONE. [Suspect]
     Active Substance: DAPSONE
     Indication: BORDERLINE LEPROSY
     Dosage: 100 MG
     Route: 065

REACTIONS (2)
  - Hyperaesthesia [Unknown]
  - Autonomic neuropathy [Recovering/Resolving]

NARRATIVE: CASE EVENT DATE: 1996
